FAERS Safety Report 5772731-2 (Version None)
Quarter: 2008Q2

REPORT INFORMATION
  Report Type: 
  Country: None (occurrence: None)
  Receive Date: 20080613
  Receipt Date: 20080603
  Transmission Date: 20081010
  Serious: Yes (Other)
  Sender: FDA-Public Use
  Company Number: US-PFIZER INC-2006049400

PATIENT
  Sex: Female
  Weight: 64.4 kg

DRUGS (4)
  1. LYRICA [Suspect]
     Indication: NERVE INJURY
     Route: 048
  2. ULTRAM [Concomitant]
     Route: 065
  3. LISINOPRIL [Concomitant]
     Route: 065
  4. LEVOXYL [Concomitant]
     Route: 065

REACTIONS (9)
  - ACTIVITIES OF DAILY LIVING IMPAIRED [None]
  - DRUG INEFFECTIVE [None]
  - INTERVERTEBRAL DISC INJURY [None]
  - PAIN [None]
  - PAIN IN EXTREMITY [None]
  - ROAD TRAFFIC ACCIDENT [None]
  - TREATMENT NONCOMPLIANCE [None]
  - VISION BLURRED [None]
  - VISUAL DISTURBANCE [None]
